FAERS Safety Report 6098034-7 (Version None)
Quarter: 2009Q1

REPORT INFORMATION
  Report Type: 
  Country: None (occurrence: None)
  Receive Date: 20090227
  Receipt Date: 20090218
  Transmission Date: 20090719
  Serious: Yes (Hospitalization, Other)
  Sender: FDA-Public Use
  Company Number: PHHY2009FR01044

PATIENT
  Sex: Female
  Weight: 51 kg

DRUGS (5)
  1. TRILEPTAL [Suspect]
     Indication: TRIGEMINAL NEURALGIA
     Dosage: 1450 MG, UNK
     Route: 048
     Dates: start: 20020902
  2. ANAFRANIL [Suspect]
     Indication: DEPRESSION
     Dosage: 75 MG, UNK
     Route: 048
     Dates: start: 20080602
  3. OROCAL [Concomitant]
     Indication: OSTEOPOROSIS
     Dosage: 2 DF/DAY
     Dates: start: 20020601
  4. BONIVA [Concomitant]
     Indication: OSTEOPOROSIS
     Dosage: 1 DF, QMO
     Dates: start: 20080909
  5. TITANOREINE [Concomitant]
     Indication: HAEMORRHOIDS
     Dosage: 1 APPLICATION, QD

REACTIONS (3)
  - PARALYSIS [None]
  - SCIATICA [None]
  - SURGERY [None]
